FAERS Safety Report 9293902 (Version 1)
Quarter: 2013Q1

REPORT INFORMATION
  Report Type: Spontaneous
  Country: US (occurrence: None)
  Receive Date: 20121214
  Receipt Date: 20121214
  Transmission Date: 20140127
  Serious: Yes (Life-Threatening, Hospitalization)
  Sender: FDA-Public Use
  Company Number: 1209USA001982

PATIENT
  Age: 70 Year
  Sex: Female
  Weight: 73.5 kg

DRUGS (10)
  1. JANUVIA [Suspect]
     Indication: TYPE 2 DIABETES MELLITUS
     Route: 048
  2. DEXILANT (DEXLANSOPRAZOLE) [Concomitant]
  3. GEMFIBROZIL (GEMFIBROZIL) [Concomitant]
  4. GLIPIZIDE (GLIPIZIDE) [Concomitant]
  5. IBUPROFEN (IBUPROFEN) [Concomitant]
  6. LEVOTHYROXINE SODIUM (LEVOTHYROXINE SODIUM) [Concomitant]
  7. LISINOPRIL (LISNOPRIL) [Concomitant]
  8. METFORMIN (METFORMIN) [Concomitant]
  9. SIMVASTATIN (SIMVASTATIN) [Concomitant]
  10. VITAMINS (UNSPECIDIED)(VITAMINS (UNSPECIFIED)) [Concomitant]

REACTIONS (3)
  - Renal failure acute [None]
  - Pancreatitis [None]
  - Hyperkalaemia [None]
